FAERS Safety Report 16362540 (Version 1)
Quarter: 2019Q3

REPORT INFORMATION
  Report Type: Spontaneous
  Country: US (occurrence: US)
  Receive Date: 20190524
  Receipt Date: 20190524
  Transmission Date: 20191004
  Serious: Yes (Hospitalization)
  Sender: FDA-Public Use
  Company Number: None

PATIENT
  Sex: Female

DRUGS (3)
  1. ENBREL [Suspect]
     Active Substance: ETANERCEPT
     Dosage: QWEEK
     Route: 058
     Dates: start: 20151215
  2. PREMAN^N [Concomitant]
  3. STOOL SOFLENER [Concomitant]

REACTIONS (2)
  - Therapy cessation [None]
  - Hysterectomy [None]
